FAERS Safety Report 19187829 (Version 1)
Quarter: 2021Q2

REPORT INFORMATION
  Report Type: Spontaneous
  Country: GB (occurrence: GB)
  Receive Date: 20210428
  Receipt Date: 20210428
  Transmission Date: 20210717
  Serious: Yes (Other)
  Sender: FDA-Public Use
  Company Number: GB-TEVA-2021-GB-1904508

PATIENT
  Age: 33 Year
  Sex: Female
  Weight: 94 kg

DRUGS (2)
  1. BACLOFEN. [Suspect]
     Active Substance: BACLOFEN
     Indication: MUSCLE SPASMS
     Dosage: 5MG
     Route: 048
     Dates: start: 20210405, end: 20210411
  2. BOOTS PARACETAMOL [Concomitant]
     Indication: ILL-DEFINED DISORDER

REACTIONS (4)
  - Insomnia [Recovered/Resolved]
  - Palpitations [Recovering/Resolving]
  - Nausea [Recovered/Resolved]
  - Anxiety [Recovered/Resolved]

NARRATIVE: CASE EVENT DATE: 20210405
